FAERS Safety Report 5499107-X (Version None)
Quarter: 2007Q4

REPORT INFORMATION
  Report Type: 
  Country: None (occurrence: None)
  Receive Date: 20071026
  Receipt Date: 20070531
  Transmission Date: 20080405
  Serious: No
  Sender: FDA-Public Use
  Company Number: A0653709A

PATIENT
  Age: 60 Year
  Sex: Male

DRUGS (6)
  1. ADVAIR DISKUS 100/50 [Suspect]
     Indication: EMPHYSEMA
     Dosage: 1PUFF TWICE PER DAY
     Route: 055
     Dates: start: 20030101
  2. ALTACE [Concomitant]
  3. SULAR [Concomitant]
  4. METOPROLOL [Concomitant]
  5. ACIPHEX [Concomitant]
  6. UNKNOWN MEDICATION [Concomitant]

REACTIONS (2)
  - ORAL MUCOSAL ERUPTION [None]
  - PHARYNGOLARYNGEAL PAIN [None]
